FAERS Safety Report 7785524-1 (Version None)
Quarter: 2011Q3

REPORT INFORMATION
  Report Type: 
  Country: None (occurrence: None)
  Receive Date: 20110929
  Receipt Date: 20110919
  Transmission Date: 20111222
  Serious: Yes (Other)
  Sender: FDA-Public Use
  Company Number: CA-JNJFOC-20110908674

PATIENT
  Sex: Male
  Weight: 82.6 kg

DRUGS (9)
  1. PREDNISONE [Concomitant]
  2. HORMONE SHOTS [Concomitant]
  3. METHOTREXATE [Concomitant]
  4. NAPROXEN [Concomitant]
  5. EXTRA STRENGTH TYLENOL [Concomitant]
  6. REMICADE [Suspect]
     Indication: RHEUMATOID ARTHRITIS
     Dosage: 41ST INFUSION ON 19-SEP-2011
     Route: 042
     Dates: start: 20070201
  7. ZOPICLONE [Concomitant]
  8. RABEPRAZOLE SODIUM [Concomitant]
  9. OXYCET [Concomitant]

REACTIONS (1)
  - JOINT SWELLING [None]
